FAERS Safety Report 6524089-9 (Version None)
Quarter: 2009Q4

REPORT INFORMATION
  Report Type: 
  Country: None (occurrence: None)
  Receive Date: 20091230
  Receipt Date: 20091230
  Transmission Date: 20100525
  Serious: Yes (Life-Threatening, Hospitalization, Disabling, Other)
  Sender: FDA-Public Use
  Company Number: None

PATIENT
  Age: 17 Year
  Sex: Male
  Weight: 81.6475 kg

DRUGS (5)
  1. GEODON [Suspect]
     Indication: SCHIZOAFFECTIVE DISORDER
     Dosage: SMALLEST 250 MG 1 MOUTH
     Route: 048
     Dates: start: 19850101
  2. SEROQUEL [Suspect]
     Indication: BIPOLAR DISORDER
     Dosage: 50 MG 1 ORAL
     Route: 048
     Dates: start: 20091214
  3. CLOZARIL [Suspect]
  4. HALDOL [Suspect]
  5. ZYPREXA ECT. [Suspect]

REACTIONS (7)
  - ASPHYXIA [None]
  - DYSPNOEA [None]
  - FEELING ABNORMAL [None]
  - HYPERHIDROSIS [None]
  - MUSCLE SPASMS [None]
  - PAIN [None]
  - TONGUE DISORDER [None]
